FAERS Safety Report 12678856 (Version 1)
Quarter: 2016Q3

REPORT INFORMATION
  Report Type: Spontaneous
  Country: US (occurrence: US)
  Receive Date: 20160824
  Receipt Date: 20160824
  Transmission Date: 20161109
  Serious: No
  Sender: FDA-Public Use
  Company Number: US-ASTRAZENECA-2016SE88013

PATIENT
  Sex: Male
  Weight: 149.5 kg

DRUGS (14)
  1. CVS EYE ITCH RELIEF EYE DROPS [Concomitant]
     Indication: CONJUNCTIVITIS ALLERGIC
  2. SYMBICORT [Suspect]
     Active Substance: BUDESONIDE\FORMOTEROL FUMARATE DIHYDRATE
     Indication: CHRONIC OBSTRUCTIVE PULMONARY DISEASE
     Dosage: 160/4.5 MCG, 2 PUFFS 2 TIMES DAILY
     Route: 055
     Dates: start: 20160727
  3. NEURONTIN [Concomitant]
     Active Substance: GABAPENTIN
     Indication: ANXIETY
  4. EFFEXOR XR [Concomitant]
     Active Substance: VENLAFAXINE HYDROCHLORIDE
     Indication: DEPRESSION
  5. NEURONTIN [Concomitant]
     Active Substance: GABAPENTIN
     Indication: NEUROPATHY PERIPHERAL
  6. SYMBICORT [Suspect]
     Active Substance: BUDESONIDE\FORMOTEROL FUMARATE DIHYDRATE
     Indication: ASTHMA
     Dosage: 160/4.5 MCG, 2 PUFFS 2 TIMES DAILY
     Route: 055
     Dates: start: 20160727
  7. FLOVENT [Concomitant]
     Active Substance: FLUTICASONE PROPIONATE
  8. CELEBREX [Concomitant]
     Active Substance: CELECOXIB
     Indication: ARTHRITIS
  9. BACLOFEN. [Concomitant]
     Active Substance: BACLOFEN
     Indication: MUSCLE SPASMS
  10. ALBUTEROL/VENTOLIN INHALER [Concomitant]
     Indication: ASTHMA
  11. UREA CREAM [Concomitant]
  12. VITAMIN D [Concomitant]
     Active Substance: CHOLECALCIFEROL
     Indication: VITAMIN D DEFICIENCY
  13. LISINOPRIL. [Suspect]
     Active Substance: LISINOPRIL
     Indication: HYPERTENSION
     Dosage: 10.0MG UNKNOWN
     Route: 048
  14. EFFEXOR XR [Concomitant]
     Active Substance: VENLAFAXINE HYDROCHLORIDE
     Indication: ANXIETY

REACTIONS (4)
  - Drug dose omission [Unknown]
  - Feeling abnormal [Unknown]
  - Anxiety [Unknown]
  - Dry skin [Unknown]
